FAERS Safety Report 10048126 (Version 1)
Quarter: 2014Q1

REPORT INFORMATION
  Report Type: Spontaneous
  Country: US (occurrence: US)
  Receive Date: 20140331
  Receipt Date: 20140331
  Transmission Date: 20141002
  Serious: No
  Sender: FDA-Public Use
  Company Number: US-PFIZER INC-2014086416

PATIENT
  Age: 70 Year
  Sex: Female

DRUGS (14)
  1. XALKORI [Suspect]
     Indication: LUNG NEOPLASM MALIGNANT
     Dosage: 250 MG, UNK
     Dates: start: 20140228
  2. CALTRATE 600 [Concomitant]
     Dosage: UNK
  3. FUROSEMIDE [Concomitant]
     Dosage: UNK
  4. GABAPENTIN [Concomitant]
     Dosage: UNK
  5. IBUPROFEN [Concomitant]
     Dosage: UNK
  6. LANSOPRAZOLE [Concomitant]
     Dosage: UNK
  7. LIPITOR [Concomitant]
     Dosage: UNK
  8. LOSARTAN POTASSIUM [Concomitant]
     Dosage: UNK
  9. MICRO-K [Concomitant]
     Dosage: UNK
  10. PROCHLORPERAZINE [Concomitant]
     Dosage: UNK
  11. SERTRALINE HYDROCHLORIDE [Concomitant]
     Dosage: UNK
  12. VITAMIN D3 [Concomitant]
     Dosage: UNK
  13. ZOLPIDEM TARTRATE [Concomitant]
     Dosage: UNK
  14. MS CONTIN [Concomitant]
     Dosage: UNK

REACTIONS (1)
  - Oedema peripheral [Unknown]
